FAERS Safety Report 16970902 (Version 1)
Quarter: 2019Q4

REPORT INFORMATION
  Report Type: Report from Study
  Country: CA (occurrence: CA)
  Receive Date: 20191029
  Receipt Date: 20191029
  Transmission Date: 20200122
  Serious: Yes (Life-Threatening, Other)
  Sender: FDA-Public Use
  Company Number: CA-PFIZER INC-2019466888

PATIENT
  Age: 63 Year
  Sex: Female

DRUGS (14)
  1. HYDROXYCHLOROQUINE [Concomitant]
     Active Substance: HYDROXYCHLOROQUINE
     Route: 065
  2. ESOMEPRAZOLE SODIUM. [Concomitant]
     Active Substance: ESOMEPRAZOLE SODIUM
     Dosage: 10.0 MG, UNK
     Route: 065
  3. CELEBREX [Concomitant]
     Active Substance: CELECOXIB
     Dosage: 100.0 MG, 2X/DAY
     Route: 065
  4. NAPROXEN. [Concomitant]
     Active Substance: NAPROXEN
     Route: 065
  5. ORENCIA [Concomitant]
     Active Substance: ABATACEPT
     Route: 065
  6. SULFASALAZINE. [Concomitant]
     Active Substance: SULFASALAZINE
     Route: 065
  7. COSENTYX [Suspect]
     Active Substance: SECUKINUMAB
     Indication: PSORIATIC ARTHROPATHY
     Dosage: 300.0 MG, MONTHLY
     Route: 058
  8. COSENTYX [Suspect]
     Active Substance: SECUKINUMAB
     Indication: PSORIATIC ARTHROPATHY
     Dosage: 300.0 MG, WEEKLY
  9. ARTHROTEC [Concomitant]
     Active Substance: DICLOFENAC SODIUM\MISOPROSTOL
     Dosage: UNK
     Route: 065
  10. CIMZIA [Concomitant]
     Active Substance: CERTOLIZUMAB PEGOL
     Dosage: 100.0 MG, UNK
     Route: 065
  11. ENBREL [Concomitant]
     Active Substance: ETANERCEPT
     Dosage: UNK
     Route: 065
  12. HUMIRA [Concomitant]
     Active Substance: ADALIMUMAB
     Route: 065
  13. METHOTREXATE SODIUM. [Suspect]
     Active Substance: METHOTREXATE SODIUM
     Dosage: UNK
     Route: 065
  14. ESOMEPRAZOLE MAGNESIUM/NAPROXEN [Concomitant]
     Route: 065

REACTIONS (24)
  - Anxiety [Unknown]
  - Menopause [Unknown]
  - Muscular weakness [Unknown]
  - Paraesthesia [Unknown]
  - Restlessness [Unknown]
  - Nausea [Unknown]
  - Oral discomfort [Unknown]
  - Peripheral swelling [Unknown]
  - Pyrexia [Unknown]
  - Feeling hot [Unknown]
  - Gastrointestinal disorder [Unknown]
  - Fatigue [Unknown]
  - Headache [Unknown]
  - Malaise [Unknown]
  - Movement disorder [Unknown]
  - Back pain [Unknown]
  - Insomnia [Unknown]
  - Migraine [Unknown]
  - Feeling abnormal [Unknown]
  - Gastric ulcer [Unknown]
  - Pruritus [Unknown]
  - Dizziness [Unknown]
  - Mouth ulceration [Unknown]
  - Pain [Unknown]
